FAERS Safety Report 9865472 (Version 2)
Quarter: 2014Q1

REPORT INFORMATION
  Report Type: Spontaneous
  Country: US (occurrence: US)
  Receive Date: 20140203
  Receipt Date: 20140203
  Transmission Date: 20141002
  Serious: No
  Sender: FDA-Public Use
  Company Number: US-ALLERGAN-1308740US

PATIENT
  Age: 72 Year
  Sex: Female

DRUGS (10)
  1. RESTASIS [Suspect]
     Indication: DRY EYE
     Dosage: 2 GTT, BID
     Route: 047
     Dates: start: 201301
  2. PRAVASTATIN [Concomitant]
     Indication: BLOOD CHOLESTEROL INCREASED
     Dosage: 20 MG, QD
     Route: 048
  3. AVISTA [Concomitant]
     Indication: BONE DISORDER
     Dosage: 60 MG, QD
     Route: 048
  4. LEVOTHYROXINE [Concomitant]
     Indication: HYPOTHYROIDISM
     Dosage: 0.075 MG, QD
     Route: 048
  5. PRANOLOL [Concomitant]
     Indication: HYPERTENSION
     Dosage: 2.5 MG, QD
     Route: 048
  6. ENALAPRIL [Concomitant]
     Indication: HYPERTENSION
     Dosage: 2.5 MG, QD
     Route: 048
  7. BLINK                              /00582501/ [Concomitant]
     Indication: DRY EYE
  8. REFRESH OPTIVE PRESERVATIVE FREE [Concomitant]
     Indication: DRY EYE
     Dosage: 3-4 TIMES PER DAY
     Route: 047
  9. REFRESH OPTIVE ADVANCED PRESERVATIVE-FREE [Concomitant]
     Indication: DRY EYE
     Dosage: 3-4 TIMES PER DAY
     Route: 047
  10. DYMISTA [Concomitant]
     Indication: HYPERSENSITIVITY
     Dosage: UNK, QD
     Route: 045

REACTIONS (5)
  - Abnormal sensation in eye [Recovering/Resolving]
  - Adverse event [Recovering/Resolving]
  - Cough [Recovering/Resolving]
  - Vision blurred [Recovering/Resolving]
  - Foreign body sensation in eyes [Recovering/Resolving]
